FAERS Safety Report 6900901-6 (Version None)
Quarter: 2010Q3

REPORT INFORMATION
  Report Type: 
  Country: None (occurrence: None)
  Receive Date: 20100803
  Receipt Date: 20100727
  Transmission Date: 20110219
  Serious: Yes (Congenital Anomaly)
  Sender: FDA-Public Use
  Company Number: A0872548A

PATIENT
  Sex: Female
  Weight: 2.8 kg

DRUGS (9)
  1. COMBIVIR [Suspect]
     Indication: HIV INFECTION
     Dates: start: 20020918
  2. VIRACEPT [Suspect]
     Indication: HIV INFECTION
     Dates: start: 20021015
  3. VIRAMUNE [Suspect]
     Indication: HIV INFECTION
     Dates: start: 20020918
  4. VIDEX [Suspect]
     Indication: HIV INFECTION
     Dates: start: 20020821, end: 20020918
  5. ASCORBIC ACID [Concomitant]
  6. BENZATHINE + BENZYLPENICILLIN + SODIUM SALT [Concomitant]
  7. DEXCHLORPHENIRAMINE MALEATE [Concomitant]
  8. IRON [Concomitant]
  9. NEBACETIN [Concomitant]

REACTIONS (3)
  - DRUG EXPOSURE DURING PREGNANCY [None]
  - PATENT DUCTUS ARTERIOSUS [None]
  - UMBILICAL HERNIA [None]
